FAERS Safety Report 9450603 (Version 3)
Quarter: 2014Q2

REPORT INFORMATION
  Report Type: Spontaneous
  Country: IT (occurrence: IT)
  Receive Date: 20130809
  Receipt Date: 20140421
  Transmission Date: 20141212
  Serious: Yes (Other)
  Sender: FDA-Public Use
  Company Number: IT-SANOFI-AVENTIS-2013SA079403

PATIENT
  Age: 68 Year
  Sex: Female

DRUGS (4)
  1. ELOXATIN [Suspect]
     Indication: COLON CANCER
     Dosage: INFUSION
     Route: 065
     Dates: start: 2011
  2. ELOXATIN [Suspect]
     Indication: COLON CANCER
     Dosage: INFUSION
     Route: 065
  3. FLUOROURACIL [Concomitant]
     Indication: COLON CANCER
     Dosage: INFUSION
     Dates: start: 2011
  4. LEUCOVORIN [Concomitant]
     Indication: COLON CANCER
     Dosage: INFUSION
     Dates: start: 2011

REACTIONS (6)
  - Thrombotic thrombocytopenic purpura [Recovered/Resolved]
  - Gingival bleeding [Recovered/Resolved]
  - International normalised ratio increased [Recovered/Resolved]
  - Nail bed bleeding [Recovered/Resolved]
  - Epistaxis [Recovered/Resolved]
  - Haematuria [Recovered/Resolved]
